FAERS Safety Report 8004720-1 (Version None)
Quarter: 2011Q4

REPORT INFORMATION
  Report Type: 
  Country: None (occurrence: None)
  Receive Date: 20111223
  Receipt Date: 20111212
  Transmission Date: 20120403
  Serious: Yes (Other)
  Sender: FDA-Public Use
  Company Number: US-RANBAXY-2011US-51197

PATIENT
  Age: 38 Year
  Sex: Male

DRUGS (6)
  1. BUSPIRONE HCL [Concomitant]
     Indication: DEPRESSION
     Dosage: UNK,UNK
     Route: 065
  2. GABAPENTIN [Suspect]
     Indication: DEPRESSION
     Dosage: UNK, UNK
     Route: 065
  3. GABAPENTIN [Suspect]
     Indication: ANXIETY
  4. BUSPIRONE HCL [Concomitant]
     Indication: ANXIETY
  5. BUPROPION HCL [Concomitant]
     Indication: DEPRESSION
     Dosage: UNK,UNK
     Route: 065
  6. BUPROPION HCL [Concomitant]
     Indication: ANXIETY

REACTIONS (5)
  - CONFUSIONAL STATE [None]
  - OFF LABEL USE [None]
  - INTENTIONAL OVERDOSE [None]
  - DRUG DEPENDENCE [None]
  - DELIRIUM [None]
